FAERS Safety Report 8989659 (Version 1)
Quarter: 2012Q4

REPORT INFORMATION
  Report Type: 
  Country: CA (occurrence: CA)
  Receive Date: 20121228
  Receipt Date: 20121228
  Transmission Date: 20130627
  Serious: Yes (Hospitalization)
  Sender: FDA-Public Use
  Company Number: CA-ACCORD-015708

PATIENT
  Age: 59 Year
  Sex: Female

DRUGS (3)
  1. QUETIAPINE FUMARATE [Suspect]
     Indication: HALLUCINATIONS
  2. CARBIDOPA/LEVODOPA [Concomitant]
     Indication: PARKINSON^S DISEASE
     Dosage: since three years, ongoing
  3. OXAZEPAM [Concomitant]
     Indication: PARKINSON^S DISEASE
     Dosage: since six months, ongoing

REACTIONS (2)
  - Acute hepatic failure [Recovering/Resolving]
  - Hepatic encephalopathy [Recovered/Resolved]
